FAERS Safety Report 4471227-8 (Version None)
Quarter: 2004Q4

REPORT INFORMATION
  Report Type: 
  Country: None (occurrence: None)
  Receive Date: 20041011
  Receipt Date: 20021203
  Transmission Date: 20050328
  Serious: Yes (Life-Threatening, Hospitalization, Disabling)
  Sender: FDA-Public Use
  Company Number: US-MERCK-0212USA00351

PATIENT
  Age: 53 Year
  Sex: Female

DRUGS (7)
  1. [THERAPY UNSPECIFIED] [Concomitant]
     Route: 065
  2. [THERAPY UNSPECIFIED] [Concomitant]
     Route: 065
  3. AXID [Concomitant]
     Route: 065
  4. VIOXX [Suspect]
     Indication: ARTHRITIS
     Route: 048
     Dates: start: 20020101, end: 20020101
  5. VIOXX [Suspect]
     Route: 048
     Dates: start: 20021001, end: 20021101
  6. VIOXX [Suspect]
     Indication: BURSITIS
     Route: 048
     Dates: start: 20020101, end: 20020101
  7. VIOXX [Suspect]
     Route: 048
     Dates: start: 20021001, end: 20021101

REACTIONS (3)
  - CARDIAC DISORDER [None]
  - MENORRHAGIA [None]
  - UTERINE DISORDER [None]
